FAERS Safety Report 7521008-3 (Version None)
Quarter: 2011Q2

REPORT INFORMATION
  Report Type: 
  Country: None (occurrence: None)
  Receive Date: 20110603
  Receipt Date: 20101112
  Transmission Date: 20111010
  Serious: Yes (Hospitalization)
  Sender: FDA-Public Use
  Company Number: US-BAYER-201026700NA

PATIENT
  Age: 29 Year
  Sex: Female
  Weight: 84 kg

DRUGS (5)
  1. ATENOLOL [Concomitant]
     Indication: HYPERTENSION
     Dates: start: 20010101
  2. LOTREL [Concomitant]
     Indication: HYPERTENSION
     Dates: start: 20040101
  3. HYDROCHLOROTHIAZIDE [Concomitant]
     Indication: HYPERTENSION
     Dates: start: 20010101
  4. WELLBUTRIN [Concomitant]
     Indication: DEPRESSION
     Dates: start: 20040101
  5. YASMIN [Suspect]
     Indication: ORAL CONTRACEPTION
     Route: 048
     Dates: start: 20021203, end: 20060101

REACTIONS (11)
  - DIZZINESS [None]
  - DYSPEPSIA [None]
  - NAUSEA [None]
  - ABDOMINAL PAIN UPPER [None]
  - BILIARY COLIC [None]
  - ABDOMINAL DISTENSION [None]
  - CONSTIPATION [None]
  - CHOLELITHIASIS [None]
  - VOMITING [None]
  - CHOLECYSTITIS CHRONIC [None]
  - GALLBLADDER CHOLESTEROLOSIS [None]
